FAERS Safety Report 9292170 (Version 1)
Quarter: 2013Q2

REPORT INFORMATION
  Report Type: Spontaneous
  Country: US (occurrence: US)
  Receive Date: 20130516
  Receipt Date: 20130516
  Transmission Date: 20140414
  Serious: No
  Sender: FDA-Public Use
  Company Number: US-BAYER-2013-060753

PATIENT
  Sex: 0

DRUGS (2)
  1. MIDOL EXTENDED RELIEF CAPLET [Suspect]
  2. ACETAMINOPHEN [Concomitant]

REACTIONS (1)
  - Dizziness [None]
